FAERS Safety Report 9184991 (Version 1)
Quarter: 2013Q1

REPORT INFORMATION
  Report Type: Spontaneous
  Country: US (occurrence: US)
  Receive Date: 20130325
  Receipt Date: 20130325
  Transmission Date: 20140127
  Serious: Yes (Hospitalization, Other)
  Sender: FDA-Public Use
  Company Number: US-JNJFOC-20130309626

PATIENT
  Sex: Female

DRUGS (5)
  1. XARELTO [Suspect]
     Indication: CEREBROVASCULAR ACCIDENT PROPHYLAXIS
     Route: 048
     Dates: start: 201210, end: 20130222
  2. XARELTO [Suspect]
     Indication: ATRIAL FIBRILLATION
     Route: 048
     Dates: start: 201210, end: 20130222
  3. EVISTA [Concomitant]
     Route: 065
  4. METOPROLOL [Concomitant]
     Route: 065
  5. PROPAFENONE [Concomitant]
     Indication: ARRHYTHMIA
     Route: 048

REACTIONS (5)
  - Gastrointestinal haemorrhage [Not Recovered/Not Resolved]
  - Anaemia [Unknown]
  - Local swelling [Recovered/Resolved]
  - Fatigue [Unknown]
  - Occult blood positive [Unknown]
